FAERS Safety Report 23794391 (Version 1)
Quarter: 2024Q2

REPORT INFORMATION
  Report Type: Spontaneous
  Country: CN (occurrence: None)
  Receive Date: 20240429
  Receipt Date: 20240429
  Transmission Date: 20240715
  Serious: Yes (Life-Threatening, Hospitalization)
  Sender: FDA-Public Use
  Company Number: CN-ROCHE-3549406

PATIENT
  Age: 66 Year
  Sex: Male

DRUGS (6)
  1. TECENTRIQ [Suspect]
     Active Substance: ATEZOLIZUMAB
     Indication: Hepatocellular carcinoma
     Dosage: T+A D1 ON 23-JUN-2021 14-JUL-2021 4-AUG-2021 25-AUG-2021 16-SEP-2021 9-OCT-2021 11-NOV-2021 2-DEC-20
     Route: 041
     Dates: start: 20210623
  2. AVASTIN [Suspect]
     Active Substance: BEVACIZUMAB
     Indication: Hepatocellular carcinoma
     Dosage: T+A D1 ON 23-JUN-2021 14-JUL-2021 4-AUG-2021 25-AUG-2021 16-SEP-2021 9-OCT-2021 11-NOV-2021 2-DEC-20
     Route: 041
     Dates: start: 20210623
  3. AVASTIN [Suspect]
     Active Substance: BEVACIZUMAB
     Dosage: T+A DOSE REDUCTION D1 ON 24-OCT-2022 2-MAR-2023 23-MAR-2023 27-APR-2023 18-MAY-2023 8-JUN-2023 31-AU
     Route: 041
     Dates: start: 20221024
  4. TENOFOVIR ALAFENAMIDE FUMARATE [Concomitant]
     Active Substance: TENOFOVIR ALAFENAMIDE FUMARATE
     Route: 048
  5. FUROSEMIDE [Concomitant]
     Active Substance: FUROSEMIDE
     Route: 048
  6. SPIRONOLACTONE [Concomitant]
     Active Substance: SPIRONOLACTONE
     Route: 048

REACTIONS (4)
  - COVID-19 [Unknown]
  - Ascites [Unknown]
  - Off label use [Unknown]
  - Gastrointestinal haemorrhage [Unknown]

NARRATIVE: CASE EVENT DATE: 20221109
